FAERS Safety Report 10069769 (Version 2)
Quarter: 2014Q2

REPORT INFORMATION
  Report Type: Spontaneous
  Country: US (occurrence: US)
  Receive Date: 20140410
  Receipt Date: 20140429
  Transmission Date: 20141212
  Serious: No
  Sender: FDA-Public Use
  Company Number: US-PFIZER INC-2014096822

PATIENT
  Age: 58 Year
  Sex: Female
  Weight: 74.83 kg

DRUGS (5)
  1. TOVIAZ [Suspect]
     Indication: BLADDER DISORDER
     Dosage: 4 MG, DAILY
     Route: 048
     Dates: start: 201104
  2. METFORMIN [Concomitant]
     Indication: DIABETES MELLITUS
     Dosage: 1000 MG, 2X/DAY
  3. LEVOTHYROXINE [Concomitant]
     Indication: HYPOTHYROIDISM
     Dosage: 137 UG, DAILY
  4. BENICAR HCT [Concomitant]
     Indication: HYPERTENSION
     Dosage: 40MG/25MG DAILY
  5. NAPROXEN [Concomitant]
     Dosage: 250 MG, DAILY

REACTIONS (1)
  - Drug ineffective [Unknown]
